FAERS Safety Report 6312644-0 (Version None)
Quarter: 2009Q3

REPORT INFORMATION
  Report Type: 
  Country: None (occurrence: None)
  Receive Date: 20090814
  Receipt Date: 20090730
  Transmission Date: 20100115
  Serious: Yes (Hospitalization)
  Sender: FDA-Public Use
  Company Number: A-NJ2009-24306

PATIENT
  Age: 72 Year
  Sex: Male

DRUGS (20)
  1. TRACLEER [Suspect]
     Indication: PULMONARY HYPERTENSION
     Dosage: 125 MG, BID, ORAL; 62.5 MG, BID, ORAL
     Route: 048
     Dates: start: 20090201, end: 20090301
  2. TRACLEER [Suspect]
     Indication: PULMONARY HYPERTENSION
     Dosage: 125 MG, BID, ORAL; 62.5 MG, BID, ORAL
     Route: 048
     Dates: start: 20090301, end: 20090605
  3. TRACLEER [Suspect]
     Indication: PULMONARY HYPERTENSION
     Dosage: 125 MG, BID, ORAL; 62.5 MG, BID, ORAL
     Route: 048
     Dates: start: 20090623
  4. SIMVASTATIN [Concomitant]
  5. PREDNISONE TAB [Concomitant]
  6. FERROUS SULFATE TAB [Concomitant]
  7. CLARITIN [Concomitant]
  8. OMEPRAZOLE [Concomitant]
  9. VITAMIN B12 (COBAMAMIDE) [Concomitant]
  10. PROVENTIL [Concomitant]
  11. TOPROL-XL [Concomitant]
  12. COUMADIN [Concomitant]
  13. CALTRATE (CALCIUM, VITAMIN D NOS) [Concomitant]
  14. FOLIC ACID [Concomitant]
  15. KLOR-CON [Concomitant]
  16. SPIRIVA [Concomitant]
  17. LASIX [Concomitant]
  18. AZITHROMYCIN [Concomitant]
  19. CETIRIZINE HCL [Concomitant]
  20. ATIVAN [Concomitant]

REACTIONS (7)
  - ALANINE AMINOTRANSFERASE INCREASED [None]
  - ASPARTATE AMINOTRANSFERASE INCREASED [None]
  - DYSPNOEA [None]
  - FATIGUE [None]
  - GASTROINTESTINAL HAEMORRHAGE [None]
  - HAEMOGLOBIN DECREASED [None]
  - RED BLOOD CELL COUNT DECREASED [None]
